FAERS Safety Report 25570408 (Version 3)
Quarter: 2025Q3

REPORT INFORMATION
  Report Type: Spontaneous
  Country: RS (occurrence: RS)
  Receive Date: 20250717
  Receipt Date: 20250915
  Transmission Date: 20251021
  Serious: Yes (Death, Life-Threatening, Other)
  Sender: ROCHE
  Company Number: RS-ROCHE-10000332169

PATIENT
  Age: 35 Year
  Sex: Female

DRUGS (22)
  1. SATRALIZUMAB [Suspect]
     Active Substance: SATRALIZUMAB
     Indication: Neuromyelitis optica spectrum disorder
     Route: 065
     Dates: start: 20241209
  2. METRONIDAZOLE [Concomitant]
     Active Substance: METRONIDAZOLE
     Route: 042
  3. CEFTRIAXONE [Concomitant]
     Active Substance: CEFTRIAXONE
  4. AMPICILLIN [Concomitant]
     Active Substance: AMPICILLIN
  5. VANCOMYCIN [Concomitant]
     Active Substance: VANCOMYCIN
  6. FLUCONAZOLE [Concomitant]
     Active Substance: FLUCONAZOLE
  7. LASIX [Concomitant]
     Active Substance: FUROSEMIDE
  8. CLONAZEPAM [Concomitant]
     Active Substance: CLONAZEPAM
  9. Treana [Concomitant]
  10. VENLAFAXINE [Concomitant]
     Active Substance: VENLAFAXINE HYDROCHLORIDE
  11. CHLORPROMAZINE [Concomitant]
     Active Substance: CHLORPROMAZINE
  12. NADROPARIN CALCIUM [Concomitant]
     Active Substance: NADROPARIN CALCIUM
  13. RAMIPRIL [Concomitant]
     Active Substance: RAMIPRIL
  14. BISOPROLOL FUMARATE [Concomitant]
     Active Substance: BISOPROLOL FUMARATE
  15. SPIRONOLACTONE [Concomitant]
     Active Substance: SPIRONOLACTONE
  16. PRONISON [Concomitant]
     Active Substance: PREDNISONE
  17. PANTOPRAZOLE SODIUM [Concomitant]
     Active Substance: PANTOPRAZOLE SODIUM
  18. TEGRETOL [Concomitant]
     Active Substance: CARBAMAZEPINE
  19. NADROPARIN CALCIUM [Concomitant]
     Active Substance: NADROPARIN CALCIUM
  20. POTASSIUM [Concomitant]
     Active Substance: POTASSIUM
  21. CLONAZEPAM [Concomitant]
     Active Substance: CLONAZEPAM
  22. OLANZAPINE [Concomitant]
     Active Substance: OLANZAPINE

REACTIONS (5)
  - Neuromyelitis optica spectrum disorder [Unknown]
  - Gait disturbance [Unknown]
  - Blindness unilateral [Unknown]
  - Pyrexia [Unknown]
  - Sepsis [Fatal]

NARRATIVE: CASE EVENT DATE: 20250609
